FAERS Safety Report 11858159 (Version 1)
Quarter: 2015Q4

REPORT INFORMATION
  Report Type: Spontaneous
  Country: US (occurrence: US)
  Receive Date: 20151222
  Receipt Date: 20151222
  Transmission Date: 20160305
  Serious: No
  Sender: FDA-Public Use
  Company Number: US-TEVA-604427USA

PATIENT
  Age: 66 Year
  Sex: Female
  Weight: 59.93 kg

DRUGS (1)
  1. TRAZODONE [Suspect]
     Active Substance: TRAZODONE HYDROCHLORIDE
     Indication: INSOMNIA
     Dosage: 1-6 TABLETS AT NIGHT (50-300MG) AND SELF REGULATES THE AMOUNT
     Route: 065
     Dates: start: 200702

REACTIONS (3)
  - Sleep apnoea syndrome [Unknown]
  - Activities of daily living impaired [Unknown]
  - Somnolence [Unknown]

NARRATIVE: CASE EVENT DATE: 201502
